FAERS Safety Report 13885772 (Version 1)
Quarter: 2017Q3

REPORT INFORMATION
  Report Type: Spontaneous
  Country: None (occurrence: US)
  Receive Date: 20170821
  Receipt Date: 20170821
  Transmission Date: 20171127
  Serious: No
  Sender: FDA-Public Use
  Company Number: US-LNK INTERNATIONAL, INC.-2024843

PATIENT
  Sex: Female

DRUGS (2)
  1. ANTI-DIARRHEAL [Suspect]
     Active Substance: LOPERAMIDE HYDROCHLORIDE
     Indication: DIARRHOEA
  2. OFEV [Concomitant]
     Active Substance: NINTEDANIB

REACTIONS (1)
  - Drug ineffective [None]
